FAERS Safety Report 8470776-5 (Version None)
Quarter: 2012Q2

REPORT INFORMATION
  Report Type: 
  Country: None (occurrence: None)
  Receive Date: 20120627
  Receipt Date: 20120618
  Transmission Date: 20120825
  Serious: Yes (Other)
  Sender: FDA-Public Use
  Company Number: PT-VERTEX PHARMACEUTICALS INC.-000000000000000889

PATIENT
  Sex: Male

DRUGS (4)
  1. EFAVIRENZ [Concomitant]
     Indication: HIV INFECTION
  2. INCIVO [Suspect]
     Indication: HEPATITIS C
     Dosage: DOSAGE FORM: TABLET
     Dates: end: 20120608
  3. PEGINTERFERON  ALFA [Concomitant]
     Indication: HEPATITIS C
  4. RIBAVIRIN [Concomitant]
     Indication: HEPATITIS C

REACTIONS (3)
  - RASH [None]
  - ALANINE AMINOTRANSFERASE INCREASED [None]
  - OFF LABEL USE [None]
